FAERS Safety Report 13499929 (Version 1)
Quarter: 2017Q2

REPORT INFORMATION
  Report Type: Other
  Country: None (occurrence: US)
  Receive Date: 20170501
  Receipt Date: 20170501
  Transmission Date: 20170830
  Serious: No
  Sender: FDA-Public Use
  Company Number: US-EXELTIS USA INC.-2020040

PATIENT
  Age: 69 Year
  Sex: Female

DRUGS (1)
  1. RECEDO TOPICAL GEL [Suspect]
     Active Substance: SILICON DIOXIDE
     Route: 061
     Dates: start: 20170310

REACTIONS (3)
  - Drug dose omission [None]
  - Device malfunction [None]
  - Product physical consistency issue [None]

NARRATIVE: CASE EVENT DATE: 20170310
